FAERS Safety Report 6085523-4 (Version None)
Quarter: 2009Q1

REPORT INFORMATION
  Report Type: 
  Country: None (occurrence: None)
  Receive Date: 20090217
  Receipt Date: 20080527
  Transmission Date: 20090719
  Serious: Yes (Other)
  Sender: FDA-Public Use
  Company Number: US-WYE-H04247108

PATIENT
  Age: 73 Year
  Sex: Female
  Weight: 40.86 kg

DRUGS (2)
  1. ALAVERT [Suspect]
     Indication: EYE PRURITUS
     Dosage: 1 TABLET AS NEEDED, ORAL
     Route: 048
     Dates: end: 20080526
  2. ALAVERT [Suspect]
     Indication: RHINORRHOEA
     Dosage: 1 TABLET AS NEEDED, ORAL
     Route: 048
     Dates: end: 20080526

REACTIONS (2)
  - UNRESPONSIVE TO STIMULI [None]
  - VOMITING [None]
